FAERS Safety Report 13374568 (Version 1)
Quarter: 2017Q1

REPORT INFORMATION
  Report Type: Spontaneous
  Country: DE (occurrence: DE)
  Receive Date: 20170327
  Receipt Date: 20170327
  Transmission Date: 20170429
  Serious: Yes (Other)
  Sender: FDA-Public Use
  Company Number: DE-TEVA-744939GER

PATIENT
  Sex: Female

DRUGS (1)
  1. ASUMATE 20 FILMTABLETTEN [Suspect]
     Active Substance: ETHINYL ESTRADIOL\LEVONORGESTREL
     Indication: ORAL CONTRACEPTION
     Route: 048
     Dates: start: 201612, end: 201701

REACTIONS (4)
  - Foetal exposure timing unspecified [Unknown]
  - Pregnancy on oral contraceptive [Unknown]
  - Abortion early [Unknown]
  - Medication error [Unknown]
